FAERS Safety Report 7424700-4 (Version None)
Quarter: 2011Q2

REPORT INFORMATION
  Report Type: 
  Country: None (occurrence: None)
  Receive Date: 20110419
  Receipt Date: 20110414
  Transmission Date: 20111010
  Serious: Yes (Life-Threatening, Hospitalization)
  Sender: FDA-Public Use
  Company Number: FR-B.I. PHARMACEUTICALS,INC./RIDGEFIELD-2011-FF-00120FF

PATIENT
  Sex: Female
  Weight: 80 kg

DRUGS (10)
  1. MEDIATENSYL [Concomitant]
     Indication: HYPERTENSION
  2. ATENOLOL [Concomitant]
  3. TRIATEC [Concomitant]
     Indication: HYPERTENSION
  4. BISOPROLOL [Concomitant]
     Indication: HYPERTENSION
  5. LEVOTHYROX [Concomitant]
     Dosage: 100 MG
  6. GLYBURIDE [Concomitant]
     Indication: TYPE 2 DIABETES MELLITUS
     Dosage: 10 MG
  7. JANUVIA [Concomitant]
     Indication: TYPE 2 DIABETES MELLITUS
  8. CO-APROVEL [Concomitant]
     Indication: HYPERTENSION
  9. PRADAXA [Suspect]
     Indication: KNEE ARTHROPLASTY
     Dosage: 110 MG
     Route: 048
     Dates: start: 20100923, end: 20100923
  10. PRADAXA [Suspect]
     Dosage: 220 MG
     Route: 048
     Dates: start: 20100924, end: 20101004

REACTIONS (6)
  - SHOCK HAEMORRHAGIC [None]
  - RECTAL HAEMORRHAGE [None]
  - COLITIS ULCERATIVE [None]
  - HAEMATEMESIS [None]
  - GASTROINTESTINAL HAEMORRHAGE [None]
  - RENAL FAILURE [None]
